FAERS Safety Report 5250015-9 (Version None)
Quarter: 2007Q1

REPORT INFORMATION
  Report Type: 
  Country: None (occurrence: None)
  Receive Date: 20070228
  Receipt Date: 20060124
  Transmission Date: 20070707
  Serious: Yes (Other)
  Sender: FDA-Public Use
  Company Number: US-GLAXOSMITHKLINE-A0590746A

PATIENT
  Sex: Female

DRUGS (3)
  1. LAMICTAL [Suspect]
     Indication: EPILEPSY
     Route: 048
     Dates: start: 20050901
  2. DILANTIN [Concomitant]
  3. CONCURRENT MEDICATIONS [Concomitant]

REACTIONS (1)
  - STEVENS-JOHNSON SYNDROME [None]
